FAERS Safety Report 4550093-6 (Version None)
Quarter: 2005Q1

REPORT INFORMATION
  Report Type: 
  Country: None (occurrence: None)
  Receive Date: 20050110
  Receipt Date: 20050104
  Transmission Date: 20050727
  Serious: Yes (Hospitalization)
  Sender: FDA-Public Use
  Company Number: CHNY2004DE02324

PATIENT
  Age: 76 Year
  Sex: Female
  Weight: 70 kg

DRUGS (1)
  1. SCOPODERM TTS (NCH) (HYOSCINE HYDROBROMIDE) TRANS-THERAPEUTIC-SYSTEM [Suspect]
     Indication: MOTION SICKNESS
     Dosage: 1 DF, Q72H, TRANSDERMAL
     Route: 062
     Dates: start: 20041017, end: 20041019

REACTIONS (9)
  - AMNESIA [None]
  - ANXIETY [None]
  - CALCINOSIS [None]
  - CEREBRAL ATROPHY [None]
  - CONFUSIONAL STATE [None]
  - DELIRIUM [None]
  - GLOBAL AMNESIA [None]
  - MANIA [None]
  - PARANOIA [None]
